FAERS Safety Report 21953523 (Version 1)
Quarter: 2023Q1

REPORT INFORMATION
  Report Type: Report from Study
  Country: US (occurrence: US)
  Receive Date: 20230204
  Receipt Date: 20230204
  Transmission Date: 20230418
  Serious: No
  Sender: FDA-Public Use
  Company Number: US-ACORDA-ACO_172637_2022

PATIENT
  Sex: Female

DRUGS (1)
  1. AMPYRA [Suspect]
     Active Substance: DALFAMPRIDINE
     Indication: Multiple sclerosis
     Dosage: 10 MILLIGRAM, BID
     Route: 048
     Dates: start: 20201105

REACTIONS (5)
  - Maternal exposure during pregnancy [Unknown]
  - Abortion induced [Recovered/Resolved]
  - Fall [Recovered/Resolved]
  - Product dose omission issue [Unknown]
  - Multiple sclerosis relapse [Recovered/Resolved]
